FAERS Safety Report 12138051 (Version 2)
Quarter: 2016Q3

REPORT INFORMATION
  Report Type: Spontaneous
  Country: TR (occurrence: TR)
  Receive Date: 20160302
  Receipt Date: 20160720
  Transmission Date: 20161109
  Serious: No
  Sender: FDA-Public Use
  Company Number: TR-MYLANLABS-2016M1008831

PATIENT

DRUGS (8)
  1. ENOXAPARIN SODIUM. [Concomitant]
     Active Substance: ENOXAPARIN SODIUM
     Indication: CAPILLARY LEAK SYNDROME
     Route: 058
  2. TRAMADOL. [Concomitant]
     Active Substance: TRAMADOL
     Indication: CAPILLARY LEAK SYNDROME
     Dosage: DOSE AT DISCHARGE: 150MG/DAY
     Route: 065
  3. TERBUTALINE [Suspect]
     Active Substance: TERBUTALINE
     Indication: CAPILLARY LEAK SYNDROME
     Dosage: 5MG/DAY
     Route: 065
  4. METHYLPREDNISOLONE. [Concomitant]
     Active Substance: METHYLPREDNISOLONE
     Indication: CAPILLARY LEAK SYNDROME
     Dosage: 500MG/DAY
     Route: 042
  5. THIOCTIC ACID [Concomitant]
     Active Substance: THIOCTIC ACID
     Indication: CAPILLARY LEAK SYNDROME
     Dosage: DOSE AT DISCHARGE: 2X600MG
     Route: 065
  6. THEOPHYLLINE [Suspect]
     Active Substance: THEOPHYLLINE ANHYDROUS
     Indication: CAPILLARY LEAK SYNDROME
     Dosage: 400MG/DAY
     Route: 065
  7. ASPIRIN                            /00002701/ [Concomitant]
     Active Substance: ASPIRIN
     Indication: CAPILLARY LEAK SYNDROME
     Dosage: 300MG
     Route: 048
  8. LEVOFLOXACIN. [Concomitant]
     Active Substance: LEVOFLOXACIN
     Indication: CAPILLARY LEAK SYNDROME
     Dosage: 500MG/DAY
     Route: 065

REACTIONS (1)
  - Off label use [Recovered/Resolved]
